FAERS Safety Report 12870393 (Version 1)
Quarter: 2016Q4

REPORT INFORMATION
  Report Type: Spontaneous
  Country: US (occurrence: US)
  Receive Date: 20161021
  Receipt Date: 20161021
  Transmission Date: 20170207
  Serious: Yes (Hospitalization, Other)
  Sender: FDA-Public Use
  Company Number: None

PATIENT
  Age: 71 Year
  Sex: Male
  Weight: 70.76 kg

DRUGS (9)
  1. HUMALOG [Concomitant]
     Active Substance: INSULIN LISPRO
  2. CELEXA [Suspect]
     Active Substance: CITALOPRAM HYDROBROMIDE
     Indication: DEPRESSION
     Dosage: ?          QUANTITY:Y ^5? MOW?? (TUB/1:4 DIVE;?
     Route: 048
     Dates: start: 20160718, end: 20160812
  3. METANX [Concomitant]
     Active Substance: LEVOMEFOLATE CALCIUM\METHYLCOBALAMIN\PYRIDOXAL PHOSPHATE ANHYDROUS
  4. EQUATE COMPLETE [Concomitant]
     Active Substance: CALCIUM CARBONATE\FAMOTIDINE\MAGNESIUM HYDROXIDE
  5. ASPIRIN. [Concomitant]
     Active Substance: ASPIRIN
  6. VITAMIN E [Concomitant]
     Active Substance: .ALPHA.-TOCOPHEROL
  7. COMPLETE MULTIVITAMIN MEN 50+ [Concomitant]
  8. SIMVASTATIN. [Concomitant]
     Active Substance: SIMVASTATIN
  9. LANTUS [Concomitant]
     Active Substance: INSULIN GLARGINE

REACTIONS (11)
  - Diarrhoea [None]
  - Drug withdrawal syndrome [None]
  - Aggression [None]
  - Seizure [None]
  - Confusional state [None]
  - Inappropriate schedule of drug administration [None]
  - Hypoglycaemia [None]
  - Impaired driving ability [None]
  - Blood glucose increased [None]
  - Abdominal distension [None]
  - Disorientation [None]

NARRATIVE: CASE EVENT DATE: 20160910
